FAERS Safety Report 20622761 (Version 1)
Quarter: 2022Q1

REPORT INFORMATION
  Report Type: Spontaneous
  Country: US (occurrence: None)
  Receive Date: 20220322
  Receipt Date: 20220322
  Transmission Date: 20220423
  Serious: No
  Sender: FDA-Public Use
  Company Number: 2022A108207

PATIENT
  Sex: Female
  Weight: 78.5 kg

DRUGS (1)
  1. BYDUREON BCISE [Suspect]
     Active Substance: EXENATIDE
     Indication: Diabetes mellitus
     Route: 058
     Dates: start: 20220214

REACTIONS (5)
  - Hypophagia [Not Recovered/Not Resolved]
  - Injection site nodule [Recovered/Resolved]
  - Injection site pain [Unknown]
  - Decreased appetite [Not Recovered/Not Resolved]
  - Injection site swelling [Unknown]
